FAERS Safety Report 9752948 (Version 1)
Quarter: 2013Q4

REPORT INFORMATION
  Report Type: Spontaneous
  Country: ES (occurrence: ES)
  Receive Date: 20131213
  Receipt Date: 20131213
  Transmission Date: 20140711
  Serious: Yes (Hospitalization, Other)
  Sender: FDA-Public Use
  Company Number: ES-SHIRE-ALL1-2013-08515

PATIENT
  Age: 25 Year
  Sex: Male

DRUGS (1)
  1. MEZAVANT [Suspect]
     Indication: PRODUCT USED FOR UNKNOWN INDICATION
     Dosage: UNK, UNKNOWN
     Route: 048
     Dates: start: 20110228, end: 20130823

REACTIONS (3)
  - Chest pain [Recovered/Resolved]
  - Pericarditis [Recovered/Resolved]
  - Pyrexia [Recovered/Resolved]
